FAERS Safety Report 9113313 (Version 3)
Quarter: 2013Q3

REPORT INFORMATION
  Report Type: Spontaneous
  Country: US (occurrence: US)
  Receive Date: 20130211
  Receipt Date: 20130702
  Transmission Date: 20140515
  Serious: Yes (Hospitalization, Other)
  Sender: FDA-Public Use
  Company Number: US-INCYTE CORPORATION-2013IN000029

PATIENT
  Age: 71 Year
  Sex: Male

DRUGS (1)
  1. JAKAFI [Suspect]
     Indication: MYELOFIBROSIS
     Dosage: 10 MG, BID
     Route: 048
     Dates: start: 20121206, end: 20130301

REACTIONS (7)
  - Deep vein thrombosis [Recovered/Resolved]
  - Hospitalisation [Unknown]
  - Abscess [Unknown]
  - Nasopharyngitis [Unknown]
  - Night sweats [Unknown]
  - Anaemia [Unknown]
  - White blood cell count decreased [Unknown]
